FAERS Safety Report 4426697-8 (Version None)
Quarter: 2004Q3

REPORT INFORMATION
  Report Type: 
  Country: None (occurrence: None)
  Receive Date: 20040816
  Receipt Date: 20040804
  Transmission Date: 20050211
  Serious: Yes (Hospitalization)
  Sender: FDA-Public Use
  Company Number: CA-MERCK-0408CAN00012

PATIENT
  Age: 58 Year
  Sex: Male

DRUGS (2)
  1. PRINIVIL [Concomitant]
     Indication: HYPERTENSION
     Route: 065
  2. VIOXX [Suspect]
     Indication: BACK PAIN
     Route: 048
     Dates: start: 20021201

REACTIONS (2)
  - ANGINA PECTORIS [None]
  - LOSS OF CONSCIOUSNESS [None]
